FAERS Safety Report 8076710-4 (Version None)
Quarter: 2012Q1

REPORT INFORMATION
  Report Type: 
  Country: None (occurrence: None)
  Receive Date: 20120127
  Receipt Date: 20120113
  Transmission Date: 20120608
  Serious: Yes (Hospitalization)
  Sender: FDA-Public Use
  Company Number: CA-JNJFOC-20120111350

PATIENT
  Sex: Male
  Weight: 82 kg

DRUGS (4)
  1. FLAGYL [Concomitant]
     Route: 048
  2. CIPROFLOXACIN [Concomitant]
     Route: 048
  3. METHOTREXATE [Concomitant]
  4. REMICADE [Suspect]
     Indication: CROHN'S DISEASE
     Route: 042
     Dates: start: 20111104

REACTIONS (2)
  - FISTULA [None]
  - CROHN'S DISEASE [None]
